FAERS Safety Report 8602364-1 (Version None)
Quarter: 2012Q3

REPORT INFORMATION
  Report Type: 
  Country: None (occurrence: None)
  Receive Date: 20120817
  Receipt Date: 19940329
  Transmission Date: 20120928
  Serious: Yes (Hospitalization)
  Sender: FDA-Public Use
  Company Number: US-ROCHE-1101524

PATIENT
  Age: 54 Year
  Sex: Female

DRUGS (3)
  1. ACTIVASE [Suspect]
     Route: 042
  2. ACTIVASE [Suspect]
  3. ACTIVASE [Suspect]
     Indication: ACUTE MYOCARDIAL INFARCTION
     Route: 040
     Dates: start: 19940202

REACTIONS (2)
  - BLOOD CREATINE PHOSPHOKINASE MB INCREASED [None]
  - REPERFUSION ARRHYTHMIA [None]
